FAERS Safety Report 5069861-X (Version None)
Quarter: 2006Q3

REPORT INFORMATION
  Report Type: 
  Country: None (occurrence: None)
  Receive Date: 20060720
  Receipt Date: 20060707
  Transmission Date: 20061208
  Serious: Yes (Hospitalization, Other)
  Sender: FDA-Public Use
  Company Number: 2006BH004236

PATIENT
  Age: 62 Year
  Sex: Female

DRUGS (9)
  1. GAMMAGARD S/D [Suspect]
     Indication: IMMUNODEFICIENCY COMMON VARIABLE
     Dosage: SEE IMAGE
     Route: 042
     Dates: start: 19980101, end: 20040101
  2. GAMMAGARD S/D [Suspect]
     Indication: IMMUNODEFICIENCY COMMON VARIABLE
     Dosage: SEE IMAGE
     Route: 042
     Dates: start: 20050101, end: 20060120
  3. GAMMAGARD S/D [Suspect]
  4. GAMMAGARD S/D [Suspect]
  5. GAMMAGARD S/D [Suspect]
  6. GAMMAGARD S/D [Suspect]
  7. GAMMAGARD S/D [Suspect]
  8. GAMMAGARD S/D [Suspect]
  9. GAMMAGARD S/D [Suspect]

REACTIONS (10)
  - FOREIGN BODY TRAUMA [None]
  - GRANULOMATOUS LIVER DISEASE [None]
  - HEPATIC FIBROSIS [None]
  - HEPATITIS [None]
  - IRON DEFICIENCY ANAEMIA [None]
  - PORTAL HYPERTENSION [None]
  - SARCOIDOSIS [None]
  - SPLENOMEGALY [None]
  - TUBERCULOSIS [None]
  - VARICES OESOPHAGEAL [None]
